FAERS Safety Report 23887056 (Version 1)
Quarter: 2024Q2

REPORT INFORMATION
  Report Type: Spontaneous
  Country: US (occurrence: US)
  Receive Date: 20240523
  Receipt Date: 20240523
  Transmission Date: 20240716
  Serious: Yes (Hospitalization)
  Sender: FDA-Public Use
  Company Number: US-BoehringerIngelheim-2024-BI-029283

PATIENT
  Age: 58 Year
  Sex: Female

DRUGS (4)
  1. JARDIANCE [Suspect]
     Active Substance: EMPAGLIFLOZIN
     Indication: Blood creatine phosphokinase abnormal
     Dosage: DAILY DOSE: 10 MILLIGRAM(S)
  2. ZEPBOUND [Suspect]
     Active Substance: TIRZEPATIDE
     Indication: Obesity
     Route: 058
     Dates: start: 20240101
  3. DULOXETINE HYDROCHLORIDE [Suspect]
     Active Substance: DULOXETINE HYDROCHLORIDE
     Indication: Panic disorder
  4. LISINOPRIL HCTZ (HYDROCHLOROTHIAZIDE, LISINOPRIL) [Concomitant]
     Indication: Product used for unknown indication

REACTIONS (4)
  - Renal function test abnormal [Recovered/Resolved]
  - Troponin increased [Recovered/Resolved]
  - Heat exhaustion [Recovered/Resolved]
  - Hypotension [Not Recovered/Not Resolved]
